FAERS Safety Report 7834235-2 (Version None)
Quarter: 2011Q4

REPORT INFORMATION
  Report Type: 
  Country: None (occurrence: None)
  Receive Date: 20111024
  Receipt Date: 20111019
  Transmission Date: 20120403
  Serious: Yes (Hospitalization, Other)
  Sender: FDA-Public Use
  Company Number: PHHY2011NL47152

PATIENT
  Sex: Female

DRUGS (8)
  1. ZOMETA [Suspect]
     Dosage: 4 MG/5 ML 1X PER 28 DAYS
     Route: 042
     Dates: start: 20110818
  2. XELODA [Concomitant]
  3. ZOMETA [Suspect]
     Dosage: 4 MG/5 ML 1X PER 28 DAYS
     Route: 042
     Dates: start: 20110919
  4. ENOXAPARIN SODIUM [Concomitant]
  5. ANALGESICS [Concomitant]
  6. ZOMETA [Suspect]
     Indication: BREAST CANCER METASTATIC
     Dosage: 4 MG/5 ML 1X PER 28 DAYS
     Route: 042
     Dates: start: 20110502
  7. NEXIUM [Concomitant]
  8. FEMARA [Concomitant]

REACTIONS (5)
  - PLEURAL EFFUSION [None]
  - PERICARDIAL EFFUSION [None]
  - PNEUMONIA [None]
  - DYSPNOEA [None]
  - METASTASES TO PLEURA [None]
